FAERS Safety Report 18023776 (Version 1)
Quarter: 2020Q3

REPORT INFORMATION
  Report Type: Spontaneous
  Country: US (occurrence: US)
  Receive Date: 20200715
  Receipt Date: 20200715
  Transmission Date: 20201103
  Serious: Yes (Death, Hospitalization, Other)
  Sender: FDA-Public Use
  Company Number: US-HIKMA PHARMACEUTICALS USA INC.-US-H14001-20-03245

PATIENT
  Age: 73 Year
  Sex: Male
  Weight: 64.5 kg

DRUGS (3)
  1. LISINOPRIL. [Concomitant]
     Active Substance: LISINOPRIL
     Indication: PRODUCT USED FOR UNKNOWN INDICATION
     Route: 065
     Dates: start: 20181129, end: 20190102
  2. INCB018424 [Suspect]
     Active Substance: RUXOLITINIB
     Indication: CHRONIC GRAFT VERSUS HOST DISEASE
     Route: 048
     Dates: start: 20181115, end: 20190113
  3. PREDNISONE. [Suspect]
     Active Substance: PREDNISONE
     Indication: PRODUCT USED FOR UNKNOWN INDICATION
     Route: 065

REACTIONS (11)
  - Pneumonia [Fatal]
  - Sepsis [Unknown]
  - Muscular weakness [Recovering/Resolving]
  - Gait disturbance [Unknown]
  - Atrial flutter [Recovering/Resolving]
  - Cervical cord compression [Unknown]
  - Respiratory failure [Unknown]
  - Atrial fibrillation [Unknown]
  - Hypophagia [Unknown]
  - Extradural abscess [Unknown]
  - Aspergillus infection [Unknown]

NARRATIVE: CASE EVENT DATE: 2019
